FAERS Safety Report 4622394-4 (Version None)
Quarter: 2005Q1

REPORT INFORMATION
  Report Type: 
  Country: None (occurrence: None)
  Receive Date: 20050325
  Receipt Date: 20050325
  Transmission Date: 20050727
  Serious: Yes (Other)
  Sender: FDA-Public Use
  Company Number: None

PATIENT
  Age: 40 Year
  Sex: Male
  Weight: 83.9154 kg

DRUGS (2)
  1. FLUOXETINE [Suspect]
     Dosage: ONE QD
     Dates: start: 20040901, end: 20050101
  2. PROZAC [Concomitant]

REACTIONS (3)
  - CONDITION AGGRAVATED [None]
  - DRUG EFFECT DECREASED [None]
  - HIATUS HERNIA [None]
